FAERS Safety Report 21223819 (Version 1)
Quarter: 2022Q3

REPORT INFORMATION
  Report Type: Report from Study
  Country: US (occurrence: US)
  Receive Date: 20220817
  Receipt Date: 20220817
  Transmission Date: 20221027
  Serious: Yes (Other)
  Sender: FDA-Public Use
  Company Number: US-BRISTOL-MYERS SQUIBB COMPANY-2022-030843

PATIENT
  Age: 93 Year
  Sex: Male
  Weight: 89.35 kg

DRUGS (4)
  1. POMALYST [Suspect]
     Active Substance: POMALIDOMIDE
     Indication: Plasma cell myeloma
     Dosage: FREQUENCY: 21 OUT OF 28 DAYS
     Route: 048
     Dates: start: 20210908
  2. DEXAMETHASONE [Concomitant]
     Active Substance: DEXAMETHASONE
  3. NEOMYCIN [Concomitant]
     Active Substance: NEOMYCIN
  4. POLYMYXIN [Concomitant]
     Active Substance: POLYMYXIN

REACTIONS (1)
  - Limb discomfort [Unknown]
